FAERS Safety Report 19470918 (Version 1)
Quarter: 2021Q2

REPORT INFORMATION
  Report Type: Spontaneous
  Country: US (occurrence: US)
  Receive Date: 20210629
  Receipt Date: 20210629
  Transmission Date: 20210717
  Serious: No
  Sender: FDA-Public Use
  Company Number: US-ALLERGAN-2115898US

PATIENT
  Sex: Female

DRUGS (2)
  1. DURYSTA [Suspect]
     Active Substance: BIMATOPROST
     Indication: INTRAOCULAR PRESSURE INCREASED
     Dosage: 0.01 MG, SINGLE
     Route: 031
  2. DURYSTA [Suspect]
     Active Substance: BIMATOPROST
     Indication: GLAUCOMA

REACTIONS (2)
  - Drug ineffective [Unknown]
  - Dark circles under eyes [Unknown]
